FAERS Safety Report 17566447 (Version 1)
Quarter: 2020Q1

REPORT INFORMATION
  Report Type: Spontaneous
  Country: CA (occurrence: CA)
  Receive Date: 20200320
  Receipt Date: 20200320
  Transmission Date: 20200409
  Serious: Yes (Life-Threatening)
  Sender: FDA-Public Use
  Company Number: CA-009507513-2003CAN007515

PATIENT
  Age: 29 Year
  Sex: Female
  Weight: 125 kg

DRUGS (4)
  1. NIFEDIPINE. [Concomitant]
     Active Substance: NIFEDIPINE
  2. SERTRALINE HYDROCHLORIDE. [Concomitant]
     Active Substance: SERTRALINE HYDROCHLORIDE
  3. NUVARING [Suspect]
     Active Substance: ETHINYL ESTRADIOL\ETONOGESTREL
     Indication: HORMONAL CONTRACEPTION
     Dosage: 1 EVERY 21 DAYS. DOSAGE FORM: RING (SLOW RELEASE)
     Route: 067
  4. LOVENOX [Concomitant]
     Active Substance: ENOXAPARIN SODIUM
     Dosage: DOSAGE FORM: SOLUTION SUBCUTANEOUS

REACTIONS (4)
  - Pulmonary embolism [Recovered/Resolved]
  - Lung assist device therapy [Recovered/Resolved]
  - Cardio-respiratory arrest [Recovered/Resolved]
  - Vena cava filter insertion [Recovered/Resolved]
